FAERS Safety Report 12644983 (Version 2)
Quarter: 2016Q3

REPORT INFORMATION
  Report Type: Spontaneous
  Country: US (occurrence: US)
  Receive Date: 20160811
  Receipt Date: 20160817
  Transmission Date: 20161109
  Serious: Yes (Hospitalization, Other)
  Sender: FDA-Public Use
  Company Number: US-ASTRAZENECA-2016SE78870

PATIENT
  Sex: Male

DRUGS (1)
  1. BRILINTA [Suspect]
     Active Substance: TICAGRELOR
     Indication: ACUTE CORONARY SYNDROME
     Route: 048
     Dates: start: 201512

REACTIONS (8)
  - Dyspnoea [Unknown]
  - Gastric disorder [Unknown]
  - Myocardial infarction [Unknown]
  - Memory impairment [Unknown]
  - Nausea [Unknown]
  - Device breakage [Unknown]
  - Ulcer [Unknown]
  - Type 2 diabetes mellitus [Unknown]
